FAERS Safety Report 4290942-2 (Version None)
Quarter: 2004Q1

REPORT INFORMATION
  Report Type: 
  Country: None (occurrence: None)
  Receive Date: 20040211
  Receipt Date: 20031016
  Transmission Date: 20041129
  Serious: No
  Sender: FDA-Public Use
  Company Number: US-GLAXOSMITHKLINE-A0430633A

PATIENT
  Age: 74 Year
  Sex: Female

DRUGS (5)
  1. PAXIL [Suspect]
     Dosage: 20MG TWICE PER DAY
     Route: 048
  2. DILACOR XR [Concomitant]
  3. LIPITOR [Concomitant]
  4. ANAFRANIL [Concomitant]
  5. PLATIL [Concomitant]

REACTIONS (4)
  - DERMATITIS [None]
  - PRURITUS GENERALISED [None]
  - RASH PAPULAR [None]
  - SWELLING [None]
